FAERS Safety Report 13334449 (Version 3)
Quarter: 2017Q3

REPORT INFORMATION
  Report Type: Spontaneous
  Country: US (occurrence: US)
  Receive Date: 20170314
  Receipt Date: 20170725
  Transmission Date: 20171127
  Serious: No
  Sender: FDA-Public Use
  Company Number: US-JNJFOC-20170207345

PATIENT
  Sex: Male

DRUGS (20)
  1. FSH [Concomitant]
     Active Substance: FOLLITROPIN
  2. APAP [Concomitant]
     Active Substance: ACETAMINOPHEN
  3. ASA [Concomitant]
     Active Substance: ASPIRIN
     Route: 048
  4. NEXIUM [Concomitant]
     Active Substance: ESOMEPRAZOLE MAGNESIUM
     Route: 048
  5. AMVASC PLUS [Concomitant]
  6. ZOLOFT [Concomitant]
     Active Substance: SERTRALINE HYDROCHLORIDE
  7. ATENOLOL. [Concomitant]
     Active Substance: ATENOLOL
  8. LISINOPRIL. [Concomitant]
     Active Substance: LISINOPRIL
     Route: 048
  9. TAMSULOSIN [Concomitant]
     Active Substance: TAMSULOSIN
     Route: 048
  10. POLYSACCHARIDE-IRON COMPLEX [Concomitant]
     Route: 048
  11. IMBRUVICA [Suspect]
     Active Substance: IBRUTINIB
     Indication: CHRONIC LYMPHOCYTIC LEUKAEMIA
     Route: 048
     Dates: start: 20170105
  12. AMIODARONE [Concomitant]
     Active Substance: AMIODARONE
  13. METFORMIN [Concomitant]
     Active Substance: METFORMIN HYDROCHLORIDE
     Route: 048
  14. NIFEREX (FERROGLYCINE SULFATE) [Concomitant]
     Active Substance: FERROGLYCINE SULFATE
  15. ACETAMINOPHEN. [Concomitant]
     Active Substance: ACETAMINOPHEN
     Route: 048
  16. OMEGA-3 FATTY ACIDS [Concomitant]
     Active Substance: OMEGA-3 FATTY ACIDS
     Route: 048
  17. OMEGA-3 FATTY ACIDS W/VITAMIN E NOS [Concomitant]
     Route: 048
  18. POTASSIUM CHLORIDE. [Concomitant]
     Active Substance: POTASSIUM CHLORIDE
     Route: 048
  19. SIMVASTATIN. [Concomitant]
     Active Substance: SIMVASTATIN
     Route: 048
  20. AMLODIPINE [Concomitant]
     Active Substance: AMLODIPINE BESYLATE
     Route: 048

REACTIONS (1)
  - Drug dose omission [Unknown]

NARRATIVE: CASE EVENT DATE: 2017
